FAERS Safety Report 5345227-X (Version None)
Quarter: 2007Q2

REPORT INFORMATION
  Report Type: 
  Country: None (occurrence: None)
  Receive Date: 20070605
  Receipt Date: 20070531
  Transmission Date: 20071010
  Serious: Yes (Other)
  Sender: FDA-Public Use
  Company Number: PHNU2007DE01537

PATIENT
  Sex: Female
  Weight: 75 kg

DRUGS (5)
  1. TEGRETOL [Suspect]
     Indication: TRIGEMINAL NEURALGIA
     Dosage: IRD, 3-4 TABLETS/DAY
     Route: 048
  2. CONCOR [Concomitant]
  3. CARMEN [Concomitant]
  4. CO-DIOVAN [Concomitant]
  5. RAMIPRIL [Concomitant]
     Dates: start: 20070301

REACTIONS (4)
  - GINGIVAL HYPERPLASIA [None]
  - GINGIVAL HYPERTROPHY [None]
  - GINGIVAL OPERATION [None]
  - HISTOLOGY ABNORMAL [None]
